FAERS Safety Report 6614509-3 (Version None)
Quarter: 2010Q1

REPORT INFORMATION
  Report Type: 
  Country: None (occurrence: None)
  Receive Date: 20100304
  Receipt Date: 20100226
  Transmission Date: 20100710
  Serious: Yes (Other)
  Sender: FDA-Public Use
  Company Number: US-MERCK-0703USA00324

PATIENT
  Age: 57 Year
  Sex: Female

DRUGS (2)
  1. FOSAMAX [Suspect]
     Route: 048
     Dates: start: 20021001, end: 20050201
  2. [THERAPY UNSPECIFIED] [Concomitant]
     Indication: HYPERTENSION
     Route: 065
     Dates: start: 19850101

REACTIONS (9)
  - BLOOD CHOLESTEROL INCREASED [None]
  - CARDIOMYOPATHY [None]
  - DENTAL CARIES [None]
  - HEPATIC CANCER METASTATIC [None]
  - METASTASES TO BONE [None]
  - ORAL DISORDER [None]
  - OSTEONECROSIS [None]
  - POLYNEUROPATHY [None]
  - TOOTH FRACTURE [None]
